FAERS Safety Report 24025147 (Version 1)
Quarter: 2024Q2

REPORT INFORMATION
  Report Type: Report from Study
  Country: DK (occurrence: DK)
  Receive Date: 20240628
  Receipt Date: 20240628
  Transmission Date: 20240716
  Serious: No
  Sender: FDA-Public Use
  Company Number: DK-ROCHE-3195321

PATIENT
  Age: 67 Year
  Sex: Female

DRUGS (2)
  1. ALECTINIB [Suspect]
     Active Substance: ALECTINIB
     Indication: Non-small cell lung cancer metastatic
     Dosage: ALECTINIB-INDUCED
     Route: 065
     Dates: start: 20220411
  2. ALECTINIB [Suspect]
     Active Substance: ALECTINIB
     Dosage: ALECTINIB REDUCED TO 450X2 DAILY WITH COMPLETE REMISSION OF SYMPTOMS IN A FEW WEEKS
     Route: 065
     Dates: start: 20220411

REACTIONS (2)
  - Myalgia [Recovered/Resolved]
  - Oedema peripheral [Recovered/Resolved]

NARRATIVE: CASE EVENT DATE: 20220501
